FAERS Safety Report 8199424-9 (Version None)
Quarter: 2012Q1

REPORT INFORMATION
  Report Type: 
  Country: None (occurrence: None)
  Receive Date: 20120309
  Receipt Date: 20120308
  Transmission Date: 20120608
  Serious: Yes (Death)
  Sender: FDA-Public Use
  Company Number: US-AMGEN-USASP2011058388

PATIENT
  Age: 53 Year
  Sex: Female
  Weight: 44.898 kg

DRUGS (6)
  1. XGEVA [Suspect]
     Indication: PRODUCT USED FOR UNKNOWN INDICATION
     Dosage: 120 MG, QMO
     Route: 058
     Dates: start: 20110315, end: 20110727
  2. NAVELBINE [Concomitant]
     Indication: BREAST CANCER
     Dosage: 40 MG, QWK
     Route: 042
     Dates: start: 20110621, end: 20110712
  3. CARBOPLATIN [Concomitant]
     Indication: BREAST CANCER
     Dosage: 465 MG, UNK
     Route: 042
     Dates: start: 20110308, end: 20110420
  4. XELODA [Concomitant]
     Indication: BREAST CANCER
     Dosage: 1000 MG, BID
     Route: 048
     Dates: start: 20110615, end: 20110719
  5. ADRIAMYCIN PFS [Concomitant]
     Indication: BREAST CANCER
     Dosage: 20 MG, QWK
     Route: 042
     Dates: start: 20110524, end: 20110607
  6. GEMZAR [Concomitant]
     Indication: BREAST CANCER
     Dosage: 1266 MG, UNK
     Route: 042
     Dates: start: 20110308, end: 20110420

REACTIONS (1)
  - DEATH [None]
